FAERS Safety Report 6529043-9 (Version None)
Quarter: 2009Q4

REPORT INFORMATION
  Report Type: 
  Country: None (occurrence: None)
  Receive Date: 20091231
  Receipt Date: 20091223
  Transmission Date: 20100525
  Serious: Yes (Death, Hospitalization, Other)
  Sender: FDA-Public Use
  Company Number: 2009SP042145

PATIENT
  Age: 74 Year
  Sex: Female
  Weight: 102 kg

DRUGS (8)
  1. TEMODAL [Suspect]
     Indication: CENTRAL NERVOUS SYSTEM NEOPLASM
     Dosage: 400 MG; PO
     Route: 048
     Dates: start: 20090930, end: 20091004
  2. TEMODAL [Suspect]
     Indication: CENTRAL NERVOUS SYSTEM NEOPLASM
     Dosage: 400 MG; PO
     Route: 048
     Dates: start: 20091008
  3. WARFARIN SODIUM [Suspect]
     Indication: DRUG USE FOR UNKNOWN INDICATION
  4. GLUKOSAMIN (CON.) [Concomitant]
  5. SIMVASTATIN (CON.) [Concomitant]
  6. ODRIK (CON.) [Concomitant]
  7. SELO-ZOK (CON.) [Concomitant]
  8. HJERDYL (CON.) [Concomitant]

REACTIONS (4)
  - ABDOMINAL PAIN UPPER [None]
  - PANCYTOPENIA [None]
  - SEPSIS [None]
  - TUMOUR HAEMORRHAGE [None]
